FAERS Safety Report 4724010-X (Version None)
Quarter: 2005Q3

REPORT INFORMATION
  Report Type: 
  Country: None (occurrence: None)
  Receive Date: 20050722
  Receipt Date: 20050715
  Transmission Date: 20060218
  Serious: Yes (Death)
  Sender: FDA-Public Use
  Company Number: 163-20785-04120161

PATIENT
  Age: 74 Year
  Sex: Male

DRUGS (1)
  1. THALOMID [Suspect]
     Indication: LYMPHOMA
     Dosage: 100 MG, AT BEDTIME, ORAL
     Route: 048
     Dates: start: 19990101, end: 20020901

REACTIONS (3)
  - DISEASE PROGRESSION [None]
  - GANGRENE [None]
  - SEPSIS [None]
